FAERS Safety Report 5492869-7 (Version None)
Quarter: 2007Q4

REPORT INFORMATION
  Report Type: 
  Country: None (occurrence: None)
  Receive Date: 20071023
  Receipt Date: 20070808
  Transmission Date: 20080405
  Serious: No
  Sender: FDA-Public Use
  Company Number: US-BRISTOL-MYERS SQUIBB COMPANY-13871736

PATIENT
  Age: 64 Year
  Sex: Female
  Weight: 46 kg

DRUGS (2)
  1. BUSPAR [Suspect]
     Indication: AFFECTIVE DISORDER
  2. DILANTIN [Concomitant]

REACTIONS (1)
  - ALOPECIA [None]
